FAERS Safety Report 10626520 (Version 1)
Quarter: 2014Q4

REPORT INFORMATION
  Report Type: Spontaneous
  Country: US (occurrence: None)
  Receive Date: 20141121
  Receipt Date: 20141121
  Transmission Date: 20150529
  Serious: No
  Sender: FDA-Public Use
  Company Number: 163-10004-14072250

PATIENT
  Age: 47 Year
  Sex: Male
  Weight: 82.1 kg

DRUGS (6)
  1. PRAVASTATIN [Concomitant]
     Active Substance: PRAVASTATIN\PRAVASTATIN SODIUM
  2. LOTREL (UNKNOWN) [Concomitant]
  3. OTEZLA [Suspect]
     Active Substance: APREMILAST
     Indication: PSORIATIC ARTHROPATHY
     Route: 048
     Dates: start: 20140107
  4. XYZAL(LEVOCETIRIZINE DIHYDROCHLORIDE) [Concomitant]
  5. MULTIVITAMINS [Concomitant]
     Active Substance: VITAMINS
  6. HYDROCHLOROTHIAZIDE. [Concomitant]
     Active Substance: HYDROCHLOROTHIAZIDE

REACTIONS (5)
  - Poor quality sleep [None]
  - Nausea [None]
  - Fatigue [None]
  - Migraine [None]
  - Eye pain [None]

NARRATIVE: CASE EVENT DATE: 20140708
